FAERS Safety Report 23742743 (Version 1)
Quarter: 2024Q2

REPORT INFORMATION
  Report Type: Spontaneous
  Country: US (occurrence: US)
  Receive Date: 20240415
  Receipt Date: 20240415
  Transmission Date: 20240716
  Serious: Yes (Other)
  Sender: FDA-Public Use
  Company Number: US-FreseniusKabi-FK202406083

PATIENT
  Age: 77 Year
  Sex: Male

DRUGS (2)
  1. ADENOSINE [Suspect]
     Active Substance: ADENOSINE
     Indication: Tachycardia
  2. ADENOSINE [Suspect]
     Active Substance: ADENOSINE

REACTIONS (4)
  - Coronary steal syndrome [Unknown]
  - Ventricular fibrillation [Unknown]
  - Cardiac arrest [Recovered/Resolved]
  - Unresponsive to stimuli [Unknown]
